FAERS Safety Report 10163831 (Version 2)
Quarter: 2014Q2

REPORT INFORMATION
  Report Type: Spontaneous
  Country: US (occurrence: US)
  Receive Date: 20140509
  Receipt Date: 20140519
  Transmission Date: 20141212
  Serious: Yes (Death, Other)
  Sender: FDA-Public Use
  Company Number: US-009507513-1405USA004307

PATIENT
  Age: 62 Year
  Sex: Female

DRUGS (1)
  1. TEMODAR [Suspect]
     Indication: GLIOBLASTOMA
     Dosage: 120 MG, QD
     Route: 048
     Dates: start: 20140404

REACTIONS (8)
  - Death [Fatal]
  - Resuscitation [Unknown]
  - Upper limb fracture [Unknown]
  - Fall [Unknown]
  - Lip injury [Unknown]
  - Haematochezia [Unknown]
  - Peripheral swelling [Unknown]
  - Anaemia [Unknown]
